FAERS Safety Report 5301921-8 (Version None)
Quarter: 2007Q2

REPORT INFORMATION
  Report Type: 
  Country: None (occurrence: None)
  Receive Date: 20070419
  Receipt Date: 20070413
  Transmission Date: 20071010
  Serious: Yes (Death)
  Sender: FDA-Public Use
  Company Number: JP-AVENTIS-200710867JP

PATIENT
  Age: 77 Year
  Sex: Female
  Weight: 27.1 kg

DRUGS (11)
  1. AMARYL [Suspect]
     Indication: DIABETES MELLITUS
     Route: 048
     Dates: start: 20070320, end: 20070321
  2. AMARYL [Suspect]
     Route: 048
     Dates: start: 20070322, end: 20070324
  3. MYSLEE [Suspect]
     Indication: INSOMNIA
     Route: 048
     Dates: start: 20061208, end: 20070324
  4. MYSLEE [Suspect]
     Route: 048
     Dates: end: 20061101
  5. ASASION [Concomitant]
     Indication: INSOMNIA
     Route: 048
     Dates: start: 20070215, end: 20070324
  6. PELEX [Concomitant]
     Dates: start: 20070319
  7. THYRADIN [Concomitant]
     Indication: HYPOTHYROIDISM
     Route: 048
     Dates: end: 20070324
  8. INNOLET 30R [Concomitant]
     Dosage: DOSE: 6-4- UNITS
  9. PIROLACTON [Concomitant]
     Indication: CARDIAC FAILURE CHRONIC
     Route: 048
     Dates: start: 20061106, end: 20070324
  10. NITROUS [Concomitant]
     Indication: CARDIAC FAILURE CHRONIC
     Route: 003
     Dates: start: 20061120, end: 20070324
  11. SENNOSIDE [Concomitant]
     Indication: CONSTIPATION
     Route: 048
     Dates: start: 20070115, end: 20070324

REACTIONS (8)
  - DEPRESSED LEVEL OF CONSCIOUSNESS [None]
  - DIABETES MELLITUS INADEQUATE CONTROL [None]
  - HEPATIC FAILURE [None]
  - HEPATITIS FULMINANT [None]
  - NASAL CONGESTION [None]
  - NASOPHARYNGITIS [None]
  - PHARYNGOLARYNGEAL PAIN [None]
  - PRURITUS [None]
